FAERS Safety Report 7825627-6 (Version None)
Quarter: 2011Q4

REPORT INFORMATION
  Report Type: 
  Country: None (occurrence: None)
  Receive Date: 20111019
  Receipt Date: 20111017
  Transmission Date: 20120403
  Serious: Yes (Other)
  Sender: FDA-Public Use
  Company Number: GXKR2011DE03065

PATIENT
  Sex: Male

DRUGS (1)
  1. CEFUROXIME [Suspect]
     Dosage: 500 MG, UNK
     Route: 048

REACTIONS (4)
  - ORAL ADMINISTRATION COMPLICATION [None]
  - UPPER AIRWAY OBSTRUCTION [None]
  - FEAR OF DEATH [None]
  - CHOKING SENSATION [None]
